FAERS Safety Report 12343558 (Version 1)
Quarter: 2016Q2

REPORT INFORMATION
  Report Type: Report from Study
  Country: BR (occurrence: BR)
  Receive Date: 20160506
  Receipt Date: 20160506
  Transmission Date: 20160815
  Serious: Yes (Other)
  Sender: FDA-Public Use
  Company Number: BR-ABBVIE-16K-020-1618984-00

PATIENT
  Sex: Female
  Weight: 67 kg

DRUGS (3)
  1. HUMIRA [Suspect]
     Active Substance: ADALIMUMAB
     Indication: PSORIASIS
     Dosage: WEEK 0 (LOADING DOSE)
     Route: 058
     Dates: start: 20111215, end: 20111215
  2. HUMIRA [Suspect]
     Active Substance: ADALIMUMAB
     Dosage: WEEK 1 (LOADING DOSE)
     Route: 058
     Dates: start: 201112, end: 201112
  3. HUMIRA [Suspect]
     Active Substance: ADALIMUMAB
     Route: 058

REACTIONS (9)
  - Abdominal neoplasm [Not Recovered/Not Resolved]
  - Pain [Unknown]
  - Urinary tract infection [Recovered/Resolved]
  - Blood cholesterol abnormal [Unknown]
  - Injury [Unknown]
  - Syncope [Recovering/Resolving]
  - Crystal urine [Unknown]
  - Urinary tract infection [Recovered/Resolved]
  - Urinary tract infection [Recovered/Resolved]

NARRATIVE: CASE EVENT DATE: 2013
